FAERS Safety Report 10006651 (Version 1)
Quarter: 2014Q1

REPORT INFORMATION
  Report Type: Spontaneous
  Country: ES (occurrence: None)
  Receive Date: 20140311
  Receipt Date: 20140311
  Transmission Date: 20141002
  Serious: Yes (Other)
  Sender: FDA-Public Use
  Company Number: AUR-APL-2014-01371

PATIENT
  Age: 58 Year
  Sex: Female

DRUGS (5)
  1. GLIMEPIRIDE (GLIMEPIRIDE) [Suspect]
     Indication: TYPE 2 DIABETES MELLITUS
     Dosage: (4 MG, 1 IN 24 HR)
  2. METFORMIN (METFORMIN) [Suspect]
     Dosage: (850 MG, 1 IN 12HR)
  3. TELMISARTAN (TELMISARTAN) [Concomitant]
  4. HYDROCHLOROTHIAZIDE (HYDROCHLOROTHIAZIDE) [Concomitant]
  5. ATORVASTATIN (ATORVASTATIN) [Concomitant]

REACTIONS (3)
  - Weight increased [None]
  - Hypoglycaemia [None]
  - Impaired driving ability [None]
